FAERS Safety Report 19116348 (Version 1)
Quarter: 2021Q2

REPORT INFORMATION
  Report Type: Spontaneous
  Country: PT (occurrence: PT)
  Receive Date: 20210409
  Receipt Date: 20210409
  Transmission Date: 20210717
  Serious: Yes (Hospitalization, Other)
  Sender: FDA-Public Use
  Company Number: PT-VALIDUS PHARMACEUTICALS LLC-PT-2021VAL000471

PATIENT
  Age: 88 Year
  Sex: Female

DRUGS (7)
  1. SERTRALINE                         /01011402/ [Suspect]
     Active Substance: SERTRALINE HYDROCHLORIDE
     Indication: PRODUCT USED FOR UNKNOWN INDICATION
     Dosage: UNK
     Route: 065
  2. OMEPRAZOLE. [Suspect]
     Active Substance: OMEPRAZOLE
     Indication: PRODUCT USED FOR UNKNOWN INDICATION
     Dosage: UNK
     Route: 065
  3. AMIODARONE HYDROCHLORIDE. [Suspect]
     Active Substance: AMIODARONE HYDROCHLORIDE
     Indication: PRODUCT USED FOR UNKNOWN INDICATION
     Dosage: UNK
     Route: 065
  4. NIFEDIPINE. [Suspect]
     Active Substance: NIFEDIPINE
     Indication: PRODUCT USED FOR UNKNOWN INDICATION
     Dosage: UNK
     Route: 065
  5. PERINDOPRIL [Suspect]
     Active Substance: PERINDOPRIL
     Indication: PRODUCT USED FOR UNKNOWN INDICATION
     Dosage: UNK
     Route: 065
  6. VERAPAMIL HYDROCHLORIDE. [Suspect]
     Active Substance: VERAPAMIL HYDROCHLORIDE
     Indication: PRODUCT USED FOR UNKNOWN INDICATION
     Dosage: UNK
     Route: 065
  7. FUROSEMIDE. [Suspect]
     Active Substance: FUROSEMIDE
     Indication: PRODUCT USED FOR UNKNOWN INDICATION
     Dosage: UNK
     Route: 065

REACTIONS (22)
  - Blood thyroid stimulating hormone increased [Unknown]
  - Myelodysplastic syndrome [Unknown]
  - Hypothyroidism [Unknown]
  - Anti-thyroid antibody positive [Unknown]
  - Anaemia macrocytic [Unknown]
  - Atrophy [Unknown]
  - Generalised oedema [Unknown]
  - Bradycardia [Unknown]
  - Inflammatory marker increased [Unknown]
  - Presyncope [Unknown]
  - Hypotension [Unknown]
  - Pneumonia [Unknown]
  - Thyroxine free decreased [Unknown]
  - Leukocytosis [Unknown]
  - Thrombocytopenia [Unknown]
  - Loss of personal independence in daily activities [Unknown]
  - Head injury [Unknown]
  - Lethargy [Unknown]
  - Pallor [Unknown]
  - Vitamin B12 increased [Unknown]
  - Fatigue [Unknown]
  - Hypokalaemia [Unknown]
